FAERS Safety Report 6386205-1 (Version None)
Quarter: 2009Q3

REPORT INFORMATION
  Report Type: 
  Country: None (occurrence: None)
  Receive Date: 20090929
  Receipt Date: 20081223
  Transmission Date: 20100115
  Serious: Yes (Life-Threatening, Hospitalization)
  Sender: FDA-Public Use
  Company Number: 14418347

PATIENT
  Age: 60 Year
  Sex: Male
  Weight: 108 kg

DRUGS (5)
  1. DEFINITY [Suspect]
     Indication: STRESS ECHOCARDIOGRAM
     Dosage: 2 ML
     Dates: start: 20081122
  2. ALBUTEROL [Concomitant]
  3. COMBIVENT [Concomitant]
  4. SYNTHROID [Concomitant]
  5. OMEPRAZOLE [Concomitant]

REACTIONS (4)
  - DYSPNOEA [None]
  - LIP SWELLING [None]
  - PRURITUS [None]
  - URTICARIA [None]
